FAERS Safety Report 5921639-8 (Version None)
Quarter: 2008Q4

REPORT INFORMATION
  Report Type: 
  Country: None (occurrence: None)
  Receive Date: 20081016
  Receipt Date: 20081016
  Transmission Date: 20090506
  Serious: Yes (Life-Threatening, Hospitalization)
  Sender: FDA-Public Use
  Company Number: None

PATIENT
  Age: 83 Year
  Sex: Female

DRUGS (1)
  1. AMOXICILLIN [Suspect]
     Dosage: 500MG ONCE PO  1 DOSE
     Route: 048
     Dates: start: 20080405, end: 20080405

REACTIONS (2)
  - ANAPHYLACTOID REACTION [None]
  - UNRESPONSIVE TO STIMULI [None]
